FAERS Safety Report 14045354 (Version 3)
Quarter: 2018Q1

REPORT INFORMATION
  Report Type: Report from Study
  Country: US (occurrence: US)
  Receive Date: 20171005
  Receipt Date: 20180328
  Transmission Date: 20180508
  Serious: Yes (Disabling, Other)
  Sender: FDA-Public Use
  Company Number: PHEH2017US031066

PATIENT
  Age: 44 Year
  Sex: Female

DRUGS (1)
  1. GILENYA [Suspect]
     Active Substance: FINGOLIMOD HYDROCHLORIDE
     Indication: MULTIPLE SCLEROSIS
     Dosage: 0.5 MG, QD
     Route: 048
     Dates: start: 20170512

REACTIONS (12)
  - Stress [Unknown]
  - Multiple sclerosis [Unknown]
  - Eye disorder [Not Recovered/Not Resolved]
  - Neuropathy peripheral [Unknown]
  - Muscle spasticity [Unknown]
  - Multiple sclerosis relapse [Unknown]
  - Altered state of consciousness [Unknown]
  - Temperature intolerance [Unknown]
  - Bradycardia [Recovered/Resolved]
  - Drug ineffective [Unknown]
  - Vertigo [Unknown]
  - Decreased interest [Unknown]

NARRATIVE: CASE EVENT DATE: 20180201
